FAERS Safety Report 18950886 (Version 1)
Quarter: 2021Q1

REPORT INFORMATION
  Report Type: Spontaneous
  Country: US (occurrence: US)
  Receive Date: 20210228
  Receipt Date: 20210228
  Transmission Date: 20210420
  Serious: No
  Sender: FDA-Public Use
  Company Number: US-ROCHE-2694729

PATIENT
  Age: 53 Year
  Sex: Female

DRUGS (2)
  1. ZYRTEC (UNITED STATES) [Concomitant]
  2. XOLAIR [Suspect]
     Active Substance: OMALIZUMAB
     Indication: CHRONIC SPONTANEOUS URTICARIA
     Route: 065
     Dates: start: 202002

REACTIONS (1)
  - COVID-19 [Unknown]
